FAERS Safety Report 10013596 (Version 2)
Quarter: 2014Q2

REPORT INFORMATION
  Report Type: Spontaneous
  Country: US (occurrence: US)
  Receive Date: 20140315
  Receipt Date: 20140423
  Transmission Date: 20141212
  Serious: No
  Sender: FDA-Public Use
  Company Number: US-009507513-1403USA006888

PATIENT
  Age: 55 Year
  Sex: Male

DRUGS (4)
  1. PEGINTRON [Suspect]
     Indication: HEPATITIS C
     Dosage: REDIPEN
     Route: 058
     Dates: start: 20140307
  2. REBETOL [Suspect]
     Indication: HEPATITIS C
     Dosage: 600 MG, BID
     Route: 048
     Dates: start: 20140307
  3. SOVALDI [Concomitant]
     Dosage: 400 MG, QD
     Route: 048
  4. VITAMINS (UNSPECIFIED) [Concomitant]

REACTIONS (4)
  - Malaise [Unknown]
  - Diarrhoea [Unknown]
  - Fatigue [Unknown]
  - Injection site erythema [Unknown]
